FAERS Safety Report 4563761-7 (Version None)
Quarter: 2005Q1

REPORT INFORMATION
  Report Type: 
  Country: None (occurrence: None)
  Receive Date: 20050121
  Receipt Date: 20050103
  Transmission Date: 20050727
  Serious: Yes (Other)
  Sender: FDA-Public Use
  Company Number: US_0412108888

PATIENT
  Age: 53 Year
  Sex: Female
  Weight: 57 kg

DRUGS (6)
  1. PEMETREXED [Suspect]
     Indication: NON-SMALL CELL LUNG CANCER
     Dosage: 500 MG/M2
     Dates: start: 20040816, end: 20040907
  2. CARBOPLATIN [Concomitant]
     Indication: NON-SMALL CELL LUNG CANCER
     Dosage: 666 MG
     Dates: start: 20040816, end: 20040907
  3. ALBUTEROL [Concomitant]
  4. VITAMIN B-12 [Concomitant]
  5. COUMADIN [Concomitant]
  6. FOLIC ACID [Concomitant]

REACTIONS (10)
  - ASPIRATION [None]
  - DISEASE PROGRESSION [None]
  - DRUG TOXICITY [None]
  - HAEMOGLOBIN DECREASED [None]
  - INFLAMMATION [None]
  - LUNG NEOPLASM [None]
  - MEDIASTINAL FIBROSIS [None]
  - MEDIASTINAL MASS [None]
  - NEOPLASM PROGRESSION [None]
  - RADIATION PNEUMONITIS [None]
